FAERS Safety Report 7973016-6 (Version None)
Quarter: 2011Q4

REPORT INFORMATION
  Report Type: 
  Country: None (occurrence: None)
  Receive Date: 20111213
  Receipt Date: 20111201
  Transmission Date: 20120403
  Serious: Yes (Other)
  Sender: FDA-Public Use
  Company Number: AU-BRISTOL-MYERS SQUIBB COMPANY-16265811

PATIENT
  Age: 69 Year
  Sex: Male

DRUGS (7)
  1. METHOTREXATE [Concomitant]
  2. ORENCIA [Suspect]
     Dosage: NO OF INFUSION:04
     Route: 042
     Dates: start: 20101220
  3. KARVEA [Concomitant]
  4. PREDNISONE [Concomitant]
  5. AZITHROMYCIN [Concomitant]
  6. ARAVA [Concomitant]
  7. HYDRO-TEX [Concomitant]

REACTIONS (2)
  - RASH [None]
  - PRESYNCOPE [None]
